FAERS Safety Report 19299983 (Version 1)
Quarter: 2021Q2

REPORT INFORMATION
  Report Type: Spontaneous
  Country: CA (occurrence: CA)
  Receive Date: 20210525
  Receipt Date: 20210525
  Transmission Date: 20210717
  Serious: Yes (Other)
  Sender: FDA-Public Use
  Company Number: CA-JNJFOC-20210531951

PATIENT
  Sex: Male

DRUGS (8)
  1. DELATESTRYL [Concomitant]
     Active Substance: TESTOSTERONE ENANTHATE
     Indication: PRODUCT USED FOR UNKNOWN INDICATION
     Route: 030
  2. VITAMIN D3 [Concomitant]
     Active Substance: CHOLECALCIFEROL
     Indication: PRODUCT USED FOR UNKNOWN INDICATION
  3. IMODIUM [Suspect]
     Active Substance: LOPERAMIDE HYDROCHLORIDE
     Indication: PRODUCT USED FOR UNKNOWN INDICATION
     Route: 065
  4. VEDOLIZUMAB [Concomitant]
     Active Substance: VEDOLIZUMAB
     Indication: COLITIS ULCERATIVE
     Route: 042
  5. ALENDRONATE SODIUM. [Concomitant]
     Active Substance: ALENDRONATE SODIUM
     Indication: PRODUCT USED FOR UNKNOWN INDICATION
  6. BUDESONIDE. [Concomitant]
     Active Substance: BUDESONIDE
     Indication: ABDOMINAL DISCOMFORT
  7. HYDROCORTISONE. [Concomitant]
     Active Substance: HYDROCORTISONE
     Indication: ABDOMINAL DISCOMFORT
  8. CALCIUM [Concomitant]
     Active Substance: CALCIUM

REACTIONS (15)
  - Influenza like illness [Unknown]
  - Pharyngitis streptococcal [Unknown]
  - Colitis ulcerative [Unknown]
  - Sinusitis [Unknown]
  - Abdominal pain [Unknown]
  - Drug ineffective [Unknown]
  - Feeling cold [Unknown]
  - Hot flush [Unknown]
  - Frequent bowel movements [Unknown]
  - Dizziness [Unknown]
  - Bronchitis [Unknown]
  - Faecal calprotectin increased [Unknown]
  - Migraine [Unknown]
  - Diarrhoea [Unknown]
  - Pyrexia [Unknown]
